FAERS Safety Report 6011582-0 (Version None)
Quarter: 2008Q4

REPORT INFORMATION
  Report Type: 
  Country: None (occurrence: None)
  Receive Date: 20081218
  Receipt Date: 20080916
  Transmission Date: 20090506
  Serious: No
  Sender: FDA-Public Use
  Company Number: US-ASTRAZENECA-2008UW19152

PATIENT
  Age: 67 Year
  Sex: Female
  Weight: 85.3 kg

DRUGS (5)
  1. CRESTOR [Suspect]
     Route: 048
     Dates: start: 20070301
  2. FOSAMAX [Concomitant]
  3. AVELEDE [Concomitant]
  4. DILTERIZAM [Concomitant]
  5. PULMICORT-100 [Concomitant]
     Route: 055

REACTIONS (1)
  - ALOPECIA [None]
